FAERS Safety Report 5530753-0 (Version None)
Quarter: 2007Q4

REPORT INFORMATION
  Report Type: 
  Country: None (occurrence: None)
  Receive Date: 20071130
  Receipt Date: 20071126
  Transmission Date: 20080405
  Serious: No
  Sender: FDA-Public Use
  Company Number: DK-ELI_LILLY_AND_COMPANY-DK200711005599

PATIENT
  Sex: Male

DRUGS (2)
  1. TADALAFIL [Suspect]
     Indication: ERECTILE DYSFUNCTION
  2. SIMVASTATIN [Concomitant]
     Dosage: 40 MG, EACH EVENING
     Route: 048
     Dates: start: 20070530

REACTIONS (1)
  - VISUAL DISTURBANCE [None]
